FAERS Safety Report 7618180-3 (Version None)
Quarter: 2011Q3

REPORT INFORMATION
  Report Type: 
  Country: None (occurrence: None)
  Receive Date: 20110718
  Receipt Date: 20110623
  Transmission Date: 20111222
  Serious: Yes (Death, Hospitalization, Disabling)
  Sender: FDA-Public Use
  Company Number: US-GLAXOSMITHKLINE-A0869891A

PATIENT
  Age: 53 Year
  Sex: Male

DRUGS (1)
  1. AVANDIA [Suspect]
     Indication: TYPE 2 DIABETES MELLITUS
     Dosage: 8MG UNKNOWN
     Route: 065
     Dates: start: 19990825, end: 20010601

REACTIONS (7)
  - CORONARY ARTERY DISEASE [None]
  - ISCHAEMIC CARDIOMYOPATHY [None]
  - DEATH [None]
  - MYOCARDIAL INFARCTION [None]
  - CARDIAC DISORDER [None]
  - CARDIAC FAILURE CONGESTIVE [None]
  - ARTERIOSCLEROSIS CORONARY ARTERY [None]
